FAERS Safety Report 11273867 (Version 2)
Quarter: 2015Q3

REPORT INFORMATION
  Report Type: Spontaneous
  Country: US (occurrence: US)
  Receive Date: 20150715
  Receipt Date: 20150901
  Transmission Date: 20151125
  Serious: Yes (Other)
  Sender: FDA-Public Use
  Company Number: US-OTSUKA-2015_005319

PATIENT

DRUGS (3)
  1. ABILIFY MAINTENA [Suspect]
     Active Substance: ARIPIPRAZOLE
     Dosage: 300 MG, EVERY 3 WEEKS
     Route: 030
  2. ABILIFY MAINTENA [Suspect]
     Active Substance: ARIPIPRAZOLE
     Indication: SCHIZOAFFECTIVE DISORDER BIPOLAR TYPE
     Dosage: 400 MG, EVERY 3 WEEKS
     Route: 030
  3. BENZTROPINE [Concomitant]
     Active Substance: BENZTROPINE
     Indication: PRODUCT USED FOR UNKNOWN INDICATION
     Dosage: UNK, AT BEDTIME
     Route: 065

REACTIONS (6)
  - Off label use [Unknown]
  - Sedation [Recovered/Resolved]
  - Muscle rigidity [Recovered/Resolved]
  - Loss of consciousness [Recovered/Resolved]
  - Depressed level of consciousness [Recovered/Resolved]
  - Inappropriate schedule of drug administration [Unknown]
